FAERS Safety Report 8394930-6 (Version None)
Quarter: 2012Q2

REPORT INFORMATION
  Report Type: 
  Country: None (occurrence: None)
  Receive Date: 20120530
  Receipt Date: 20110906
  Transmission Date: 20120825
  Serious: No
  Sender: FDA-Public Use
  Company Number: US-GLAXOSMITHKLINE-A0943766A

PATIENT
  Age: 37 Year
  Sex: Female
  Weight: 157 kg

DRUGS (3)
  1. LASIX [Concomitant]
     Dosage: 20MG PER DAY
     Route: 065
  2. FLOLAN [Suspect]
     Indication: PULMONARY ARTERIAL HYPERTENSION
     Dosage: 40NGKM PER DAY
     Route: 042
     Dates: start: 20050309
  3. IMODIUM [Concomitant]
     Dosage: 2MG AS REQUIRED
     Route: 065

REACTIONS (2)
  - ERYTHEMA [None]
  - PAIN IN JAW [None]
